FAERS Safety Report 7315461-8 (Version None)
Quarter: 2011Q1

REPORT INFORMATION
  Report Type: 
  Country: None (occurrence: None)
  Receive Date: 20110218
  Receipt Date: 20110218
  Transmission Date: 20110831
  Serious: Yes (Hospitalization)
  Sender: FDA-Public Use
  Company Number: None

PATIENT
  Age: 82 Year
  Sex: Female

DRUGS (10)
  1. PRILOSEC [Concomitant]
  2. NOVOLOG [Concomitant]
  3. FLUCONAZOLE [Concomitant]
  4. LOTREL [Concomitant]
  5. COUMADIN [Suspect]
     Indication: CORONARY ARTERY DISEASE
     Dosage: 4 MG DAILY PO CHRONIC
     Route: 048
  6. CRESTOR [Concomitant]
  7. FERROUS SULFATE TAB [Concomitant]
  8. LASIX [Concomitant]
  9. ASPIRIN [Suspect]
     Indication: CORONARY ARTERY DISEASE
     Dosage: 81 MG DAILY PO CHRONIC
     Route: 048
  10. LOPRESSOR [Concomitant]

REACTIONS (4)
  - INTERNATIONAL NORMALISED RATIO INCREASED [None]
  - ANTICOAGULATION DRUG LEVEL ABOVE THERAPEUTIC [None]
  - HAEMORRHAGIC ANAEMIA [None]
  - GASTROINTESTINAL HAEMORRHAGE [None]
